FAERS Safety Report 5473475-7 (Version None)
Quarter: 2007Q4

REPORT INFORMATION
  Report Type: 
  Country: None (occurrence: None)
  Receive Date: 20071001
  Receipt Date: 20070917
  Transmission Date: 20080405
  Serious: Yes (Hospitalization)
  Sender: FDA-Public Use
  Company Number: US-SHR-99/01463-USE

PATIENT
  Age: 49 Year
  Sex: Female
  Weight: 85 kg

DRUGS (2)
  1. RITUXIMAB [Suspect]
     Indication: LYMPHOMA
     Dosage: 724MG
     Dates: start: 19980511, end: 19981009
  2. FLUDARA [Suspect]
     Indication: LYMPHOMA
     Dosage: 48.25
     Route: 042
     Dates: start: 19980518, end: 19981016

REACTIONS (3)
  - CHEST PAIN [None]
  - DYSPNOEA [None]
  - PANCYTOPENIA [None]
